FAERS Safety Report 15859805 (Version 1)
Quarter: 2019Q1

REPORT INFORMATION
  Report Type: Spontaneous
  Country: US (occurrence: US)
  Receive Date: 20190123
  Receipt Date: 20190123
  Transmission Date: 20190417
  Serious: No
  Sender: FDA-Public Use
  Company Number: US-ABBVIE-18P-163-2579343-00

PATIENT
  Sex: Female

DRUGS (1)
  1. ORILISSA [Suspect]
     Active Substance: ELAGOLIX SODIUM
     Indication: ENDOMETRIOSIS
     Route: 048
     Dates: start: 201810

REACTIONS (6)
  - Nausea [Unknown]
  - Headache [Unknown]
  - Swelling [Unknown]
  - Drug ineffective [Unknown]
  - Abdominal pain [Unknown]
  - Hot flush [Unknown]
